FAERS Safety Report 13474079 (Version 1)
Quarter: 2017Q2

REPORT INFORMATION
  Report Type: Spontaneous
  Country: US (occurrence: US)
  Receive Date: 20170424
  Receipt Date: 20170424
  Transmission Date: 20170830
  Serious: No
  Sender: FDA-Public Use
  Company Number: US-SA-2016SA076980

PATIENT
  Sex: Male

DRUGS (1)
  1. LOVENOX [Suspect]
     Active Substance: ENOXAPARIN SODIUM
     Indication: EMBOLIC STROKE
     Dosage: LOVENOX 60MG/0.6ML EVERY 12 HOURS.
     Route: 065
     Dates: start: 20160412

REACTIONS (1)
  - Abdominal pain upper [Unknown]
